FAERS Safety Report 6138674-X (Version None)
Quarter: 2009Q1

REPORT INFORMATION
  Report Type: 
  Country: None (occurrence: None)
  Receive Date: 20090331
  Receipt Date: 20090326
  Transmission Date: 20090719
  Serious: Yes (Death, Hospitalization, Other)
  Sender: FDA-Public Use
  Company Number: PHHY2009PL11334

PATIENT
  Age: 21 Year
  Sex: Female

DRUGS (4)
  1. CYCLOSPORINE [Suspect]
     Indication: CORD BLOOD TRANSPLANT THERAPY
     Dosage: 200MG/KG
  2. BUSULFAN [Concomitant]
     Indication: CORD BLOOD TRANSPLANT THERAPY
     Dosage: 16MG/KG
  3. CYCLOPHOSPHAMIDE [Concomitant]
     Indication: CORD BLOOD TRANSPLANT THERAPY
     Dosage: 200 MG/KG
  4. ATG-FRESENIUS [Concomitant]
     Indication: CORD BLOOD TRANSPLANT THERAPY
     Dosage: 30 MG/KG

REACTIONS (12)
  - ACUTE GRAFT VERSUS HOST DISEASE IN SKIN [None]
  - ANAEMIA HAEMOLYTIC AUTOIMMUNE [None]
  - CYTOMEGALOVIRUS INFECTION [None]
  - HAEMOLYSIS [None]
  - IDIOPATHIC PNEUMONIA SYNDROME [None]
  - INTERSTITIAL LUNG DISEASE [None]
  - OTITIS MEDIA [None]
  - PANCYTOPENIA [None]
  - PNEUMONITIS [None]
  - SEPTIC SHOCK [None]
  - SPLENECTOMY [None]
  - STREPTOCOCCAL SEPSIS [None]
